FAERS Safety Report 19210805 (Version 1)
Quarter: 2021Q2

REPORT INFORMATION
  Report Type: Report from Study
  Country: JP (occurrence: JP)
  Receive Date: 20210504
  Receipt Date: 20210504
  Transmission Date: 20210717
  Serious: No
  Sender: FDA-Public Use
  Company Number: JP-JNJFOC-20210446145

PATIENT
  Age: 35 Year
  Sex: Female

DRUGS (10)
  1. EDIROL [Concomitant]
     Active Substance: ELDECALCITOL
     Indication: PROPHYLAXIS
     Route: 048
     Dates: end: 20210128
  2. HIRUDOID [Concomitant]
     Active Substance: GLYCOSAMINOGLYCANS
     Indication: SKIN ULCER
     Dosage: Q.S.,P.R.N
     Route: 061
     Dates: start: 20200605
  3. BOSENTAN. [Suspect]
     Active Substance: BOSENTAN
     Indication: SKIN ULCER
     Dosage: IN THE MORNING
     Route: 048
     Dates: start: 20201024, end: 20201126
  4. JUVELA [Concomitant]
     Active Substance: .ALPHA.-TOCOPHEROL\RETINOL
     Indication: SKIN ULCER
     Route: 048
  5. BAYASPIRIN [Concomitant]
     Active Substance: ASPIRIN
     Indication: SKIN ULCER
     Route: 048
     Dates: start: 20130918
  6. MYSER [Concomitant]
     Indication: SKIN ULCER
     Dosage: Q.S.
     Route: 061
     Dates: start: 20201023
  7. THYRADIN [Concomitant]
     Active Substance: LEVOTHYROXINE
     Indication: AUTOIMMUNE THYROIDITIS
     Route: 048
  8. PREDNISOLONE. [Concomitant]
     Active Substance: PREDNISOLONE
     Indication: SKIN ULCER
     Route: 048
     Dates: start: 20200822
  9. NEXIUM [Concomitant]
     Active Substance: ESOMEPRAZOLE MAGNESIUM
     Indication: PROPHYLAXIS
     Route: 048
     Dates: start: 20191217, end: 20210128
  10. BOSENTAN. [Suspect]
     Active Substance: BOSENTAN
     Dosage: IN THE MORNING AND EVENING
     Route: 048
     Dates: start: 20201127, end: 20210128

REACTIONS (1)
  - Exposure during pregnancy [Unknown]
